FAERS Safety Report 4949263-4 (Version None)
Quarter: 2006Q1

REPORT INFORMATION
  Report Type: 
  Country: None (occurrence: None)
  Receive Date: 20060321
  Receipt Date: 20060320
  Transmission Date: 20060701
  Serious: Yes (Other)
  Sender: FDA-Public Use
  Company Number: US-GLAXOSMITHKLINE-A0598163A

PATIENT
  Age: 63 Year
  Sex: Male

DRUGS (1)
  1. COMMIT NICOTINE POLACRILEX MINT LOZENGE [Suspect]
     Indication: SMOKING CESSATION THERAPY
     Dates: start: 20050101

REACTIONS (2)
  - DEPENDENCE [None]
  - DRUG DEPENDENCE [None]
